FAERS Safety Report 23410528 (Version 2)
Quarter: 2024Q1

REPORT INFORMATION
  Report Type: Spontaneous
  Country: AU (occurrence: AU)
  Receive Date: 20240117
  Receipt Date: 20240124
  Transmission Date: 20240410
  Serious: Yes (Other)
  Sender: FDA-Public Use
  Company Number: AU-BAYER-2024A007095

PATIENT
  Age: 68 Year
  Sex: Female

DRUGS (1)
  1. LORATADINE [Suspect]
     Active Substance: LORATADINE
     Indication: Pruritus
     Dosage: UNK
     Dates: start: 20230113

REACTIONS (11)
  - Angioedema [Recovered/Resolved]
  - Asthenopia [Recovered/Resolved]
  - Swelling face [Recovered/Resolved]
  - Paraesthesia oral [Recovered/Resolved]
  - Pharyngeal hypoaesthesia [Recovered/Resolved]
  - Hypoaesthesia oral [Recovered/Resolved]
  - Dysphagia [Recovered/Resolved]
  - Gait disturbance [Recovered/Resolved]
  - Dizziness [Recovered/Resolved]
  - Dysarthria [Recovered/Resolved]
  - Cognitive disorder [None]
